FAERS Safety Report 6340513-9 (Version None)
Quarter: 2009Q3

REPORT INFORMATION
  Report Type: 
  Country: None (occurrence: None)
  Receive Date: 20090904
  Receipt Date: 20090831
  Transmission Date: 20100115
  Serious: No
  Sender: FDA-Public Use
  Company Number: US-JNJFOC-20090900922

PATIENT
  Sex: Female
  Weight: 77.11 kg

DRUGS (4)
  1. DURAGESIC-100 [Suspect]
     Indication: RADICULAR PAIN
     Route: 062
  2. IMITREX [Concomitant]
     Indication: MIGRAINE
     Dosage: AS NEEDED
     Route: 048
  3. PERCOCET [Concomitant]
     Indication: PAIN
     Dosage: 10-325 MG AS NEEDED
     Route: 048
  4. FLUOXETINE [Concomitant]
     Indication: MIGRAINE
     Route: 048

REACTIONS (2)
  - APPLICATION SITE RASH [None]
  - WRONG TECHNIQUE IN DRUG USAGE PROCESS [None]
